FAERS Safety Report 5909755-8 (Version None)
Quarter: 2008Q4

REPORT INFORMATION
  Report Type: 
  Country: None (occurrence: None)
  Receive Date: 20081007
  Receipt Date: 20081002
  Transmission Date: 20090506
  Serious: Yes (Hospitalization)
  Sender: FDA-Public Use
  Company Number: US-ALLERGAN-0812382US

PATIENT
  Sex: Female

DRUGS (1)
  1. BOTOX [Suspect]
     Indication: BLEPHAROSPASM
     Dosage: 50 UNITS, SINGLE
     Route: 030
     Dates: start: 20080902, end: 20080902

REACTIONS (4)
  - BACK PAIN [None]
  - ENCEPHALITIS [None]
  - MENINGITIS VIRAL [None]
  - PYREXIA [None]
